FAERS Safety Report 13428152 (Version 5)
Quarter: 2017Q2

REPORT INFORMATION
  Report Type: Report from Study
  Country: US (occurrence: US)
  Receive Date: 20170411
  Receipt Date: 20170614
  Transmission Date: 20170830
  Serious: Yes (Hospitalization, Other)
  Sender: FDA-Public Use
  Company Number: US-ACTELION-A-US2017-152214

PATIENT
  Age: 58 Year
  Sex: Female
  Weight: 89.8 kg

DRUGS (5)
  1. ADCIRCA [Concomitant]
     Active Substance: TADALAFIL
  2. WARFARIN [Concomitant]
     Active Substance: WARFARIN
  3. OPSUMIT [Suspect]
     Active Substance: MACITENTAN
     Indication: PULMONARY HYPERTENSION
     Dosage: 10 MG, UNK
     Route: 048
  4. TYVASO [Concomitant]
     Active Substance: TREPROSTINIL
  5. VERAPAMIL [Concomitant]
     Active Substance: VERAPAMIL HYDROCHLORIDE

REACTIONS (17)
  - Dry mouth [Unknown]
  - Infection [Unknown]
  - Syncope [Unknown]
  - Loss of consciousness [Unknown]
  - Weight increased [Unknown]
  - Eye luxation [Unknown]
  - Nausea [Unknown]
  - Blood pressure increased [Unknown]
  - Pyrexia [Unknown]
  - Oxygen saturation decreased [Unknown]
  - Viral upper respiratory tract infection [Unknown]
  - Dyspepsia [Unknown]
  - Biopsy bone marrow [Unknown]
  - Cough [Not Recovered/Not Resolved]
  - Pericardial effusion [Unknown]
  - Abdominal discomfort [Unknown]
  - Dyspnoea [Unknown]

NARRATIVE: CASE EVENT DATE: 20170322
